FAERS Safety Report 6184439-2 (Version None)
Quarter: 2009Q2

REPORT INFORMATION
  Report Type: 
  Country: None (occurrence: None)
  Receive Date: 20090507
  Receipt Date: 20090507
  Transmission Date: 20091009
  Serious: Yes (Life-Threatening, Hospitalization)
  Sender: FDA-Public Use
  Company Number: None

PATIENT
  Age: 68 Year
  Sex: Female
  Weight: 53.978 kg

DRUGS (1)
  1. DIGOXIN [Suspect]
     Indication: CARDIAC DISORDER
     Dosage: 0.125 MG 1 PER DAY APPX. 2007 OR 2008

REACTIONS (11)
  - ASTHENIA [None]
  - BLOOD POTASSIUM DECREASED [None]
  - DEPRESSION [None]
  - FATIGUE [None]
  - HALLUCINATION [None]
  - KIDNEY INFECTION [None]
  - MOOD ALTERED [None]
  - NAUSEA [None]
  - RENAL DISORDER [None]
  - RENAL FAILURE [None]
  - VISION BLURRED [None]
